FAERS Safety Report 20897331 (Version 1)
Quarter: 2022Q2

REPORT INFORMATION
  Report Type: Spontaneous
  Country: US (occurrence: US)
  Receive Date: 20220531
  Receipt Date: 20220531
  Transmission Date: 20220721
  Serious: No
  Sender: FDA-Public Use
  Company Number: US-PFIZER INC-202200760980

PATIENT
  Age: 78 Year
  Sex: Female
  Weight: 80.92 kg

DRUGS (2)
  1. PAXLOVID [Suspect]
     Active Substance: NIRMATRELVIR\RITONAVIR
     Indication: COVID-19 treatment
     Dosage: 2 TABLETS OF NIRMATRELVIR AND ONE TABLET OF RITONAVIR
     Route: 048
     Dates: start: 20220524
  2. PAXLOVID [Suspect]
     Active Substance: NIRMATRELVIR\RITONAVIR
     Dosage: TWO PILLS OF THE RITONAVIR AND DID NOT RECEIVE NIRMATRELVIR)

REACTIONS (1)
  - Incorrect dose administered [Unknown]

NARRATIVE: CASE EVENT DATE: 20220524
